FAERS Safety Report 21001111 (Version 1)
Quarter: 2022Q2

REPORT INFORMATION
  Report Type: Spontaneous
  Country: US (occurrence: US)
  Receive Date: 20220624
  Receipt Date: 20220624
  Transmission Date: 20220721
  Serious: No
  Sender: FDA-Public Use
  Company Number: US-BioHaven Pharmaceuticals-2022BHV000732

PATIENT
  Age: 52 Year
  Sex: Female
  Weight: 77.180 kg

DRUGS (5)
  1. NURTEC ODT [Suspect]
     Active Substance: RIMEGEPANT SULFATE
     Indication: Migraine
     Dosage: I WAS FIRST PRESCRIBED ON 11-NOV BUT I DON^T REMEMBER IF I TOOK IT THAT DAY
     Route: 048
     Dates: start: 202111
  2. TYLENOL [Concomitant]
     Active Substance: ACETAMINOPHEN
     Indication: Headache
     Dosage: I HAVE BEEN ABLE TO TREAT SOME OF MY HEADACHES WITH 2 TYLENOL
     Route: 065
  3. BENADRYL [Concomitant]
     Active Substance: DIPHENHYDRAMINE HYDROCHLORIDE
     Indication: Headache
     Route: 065
  4. SUMATRIPTAN [Concomitant]
     Active Substance: SUMATRIPTAN
     Indication: Migraine
     Dosage: I AM BACK TO USING THE SUMATRIPTAN ON OCCASION, THAT HAS ALSO BEEN WHAT I HAVE USED SOMETIMES
     Route: 065
  5. MIRALAX [Concomitant]
     Active Substance: POLYETHYLENE GLYCOL 3350
     Indication: Product used for unknown indication
     Route: 065

REACTIONS (1)
  - Unevaluable event [Not Recovered/Not Resolved]
